FAERS Safety Report 24387482 (Version 1)
Quarter: 2024Q4

REPORT INFORMATION
  Report Type: Spontaneous
  Country: US (occurrence: None)
  Receive Date: 20241001
  Receipt Date: 20241001
  Transmission Date: 20250115
  Serious: No
  Sender: Public
  Company Number: None

PATIENT
  Age: 81 Year
  Sex: Female

DRUGS (1)
  1. OTEZLA [Suspect]
     Active Substance: APREMILAST
     Indication: Polyarthritis
     Dosage: TAKE 1 TABLET BY MOUTH TWICE DAILY AS DIRECTED.
     Route: 048
     Dates: start: 202409

REACTIONS (1)
  - Colonoscopy [None]
